FAERS Safety Report 7439654-4 (Version None)
Quarter: 2011Q2

REPORT INFORMATION
  Report Type: 
  Country: None (occurrence: None)
  Receive Date: 20110427
  Receipt Date: 20110425
  Transmission Date: 20111010
  Serious: Yes (Hospitalization)
  Sender: FDA-Public Use
  Company Number: US-SP-2011-02047

PATIENT
  Sex: Male

DRUGS (5)
  1. TUBERSOL [Suspect]
     Indication: TUBERCULIN TEST
     Route: 023
     Dates: start: 20110404, end: 20110404
  2. HYDRALAZINE [Concomitant]
  3. DIOVAN [Concomitant]
  4. TORSAMIDE [Concomitant]
  5. COREG CR [Concomitant]

REACTIONS (7)
  - BLOOD PRESSURE INCREASED [None]
  - CHILLS [None]
  - CHEST PAIN [None]
  - FEELING ABNORMAL [None]
  - DYSPNOEA [None]
  - HYPERTENSIVE CRISIS [None]
  - DYSPHONIA [None]
